FAERS Safety Report 8808014 (Version 1)
Quarter: 2012Q4

REPORT INFORMATION
  Report Type: 
  Country: US (occurrence: US)
  Receive Date: 20120925
  Receipt Date: 20120925
  Transmission Date: 20130627
  Serious: Yes (Death)
  Sender: FDA-Public Use
  Company Number: US-JNJFOC-20120910318

PATIENT

DRUGS (3)
  1. XARELTO [Suspect]
     Indication: THROMBOSIS PROPHYLAXIS
     Route: 048
  2. XARELTO [Suspect]
     Indication: KNEE ARTHROPLASTY
     Route: 048
  3. CELEBREX [Concomitant]

REACTIONS (4)
  - Gastric haemorrhage [Fatal]
  - Haemoptysis [Fatal]
  - Abdominal distension [Unknown]
  - Drug abuser [Unknown]
